FAERS Safety Report 8226432-1 (Version None)
Quarter: 2012Q1

REPORT INFORMATION
  Report Type: 
  Country: None (occurrence: None)
  Receive Date: 20120321
  Receipt Date: 20120312
  Transmission Date: 20120608
  Serious: Yes (Hospitalization, Other)
  Sender: FDA-Public Use
  Company Number: US-ASTRAZENECA-2009SE19621

PATIENT
  Age: 73 Year
  Sex: Female

DRUGS (5)
  1. SEROQUEL [Suspect]
     Indication: DAYDREAMING
     Route: 048
  2. SEROQUEL [Suspect]
     Route: 048
  3. SEROQUEL [Suspect]
     Route: 048
  4. SEROQUEL [Suspect]
     Indication: NERVOUSNESS
     Route: 048
  5. NEXIUM [Suspect]
     Indication: HIATUS HERNIA
     Route: 048

REACTIONS (6)
  - ADVERSE EVENT [None]
  - MYOCARDIAL INFARCTION [None]
  - OFF LABEL USE [None]
  - DRUG DOSE OMISSION [None]
  - MALAISE [None]
  - FATIGUE [None]
